FAERS Safety Report 21369280 (Version 1)
Quarter: 2022Q3

REPORT INFORMATION
  Report Type: Spontaneous
  Country: US (occurrence: US)
  Receive Date: 20220923
  Receipt Date: 20220923
  Transmission Date: 20221027
  Serious: Yes (Hospitalization, Other)
  Sender: FDA-Public Use
  Company Number: US-UNITED THERAPEUTICS-UNT-2022-012334

PATIENT
  Sex: Male
  Weight: 103.86 kg

DRUGS (5)
  1. TYVASO [Suspect]
     Active Substance: TREPROSTINIL
     Indication: Pulmonary arterial hypertension
     Dosage: UNK
     Dates: start: 20220321, end: 2022
  2. TYVASO [Suspect]
     Active Substance: TREPROSTINIL
     Dosage: 18-72 ?G, QID
     Dates: start: 2022
  3. TYVASO [Suspect]
     Active Substance: TREPROSTINIL
     Dosage: UNK
     Dates: start: 2022
  4. TYVASO [Suspect]
     Active Substance: TREPROSTINIL
     Dosage: 24 ?G, QID
     Dates: start: 2022
  5. SILDENAFIL CITRATE [Concomitant]
     Active Substance: SILDENAFIL CITRATE
     Indication: Product used for unknown indication
     Dosage: UNK
     Route: 065

REACTIONS (11)
  - Foot fracture [Unknown]
  - Electrolyte imbalance [Unknown]
  - Loss of consciousness [Unknown]
  - Seizure [Unknown]
  - Neuropathy peripheral [Unknown]
  - Fall [Recovered/Resolved with Sequelae]
  - Skin laceration [Unknown]
  - Cough [Unknown]
  - Oedema [Not Recovered/Not Resolved]
  - Device power source issue [Unknown]
  - Device failure [Unknown]

NARRATIVE: CASE EVENT DATE: 20220101
